FAERS Safety Report 18360479 (Version 1)
Quarter: 2020Q4

REPORT INFORMATION
  Report Type: Spontaneous
  Country: US (occurrence: US)
  Receive Date: 20201008
  Receipt Date: 20201008
  Transmission Date: 20210114
  Serious: No
  Sender: FDA-Public Use
  Company Number: US-INDIVIOR US-INDV-124415-2020

PATIENT
  Age: 35 Year
  Sex: Female

DRUGS (8)
  1. SUBOXONE [Suspect]
     Active Substance: BUPRENORPHINE HYDROCHLORIDE\NALOXONE HYDROCHLORIDE
     Indication: DRUG DEPENDENCE
     Dosage: 10MG DAILY (ONE 8MG FILM PLUS ONE 2MG FILM)
     Route: 060
     Dates: start: 20191224
  2. SUBOXONE [Suspect]
     Active Substance: BUPRENORPHINE HYDROCHLORIDE\NALOXONE HYDROCHLORIDE
     Dosage: 10MG DAILY (ONE 8MG FILM PLUS ONE 2MG FILM)
     Route: 060
     Dates: start: 20200405, end: 20200405
  3. SUBOXONE [Suspect]
     Active Substance: BUPRENORPHINE HYDROCHLORIDE\NALOXONE HYDROCHLORIDE
     Dosage: 9MG DAILY (ONE 8 MG FILM AND A HALF 2 MG FILM)
     Route: 060
     Dates: end: 20200404
  4. SUBOXONE [Suspect]
     Active Substance: BUPRENORPHINE HYDROCHLORIDE\NALOXONE HYDROCHLORIDE
     Dosage: 16 MILLIGRAMS (ONE 8 MG FILM PLUS FOUR 2 MG FILMS)
     Route: 060
     Dates: start: 20200406, end: 20200406
  5. SUBOXONE [Suspect]
     Active Substance: BUPRENORPHINE HYDROCHLORIDE\NALOXONE HYDROCHLORIDE
     Dosage: 9MG DAILY (ONE 8 MG FILM AND A HALF 2 MG FILM)
     Route: 060
     Dates: end: 20200404
  6. SUBOXONE [Suspect]
     Active Substance: BUPRENORPHINE HYDROCHLORIDE\NALOXONE HYDROCHLORIDE
     Dosage: 8 MILLIGRAM, QD (FOUR 2 MG FILMS)
     Route: 060
     Dates: start: 20200406
  7. SUBOXONE [Suspect]
     Active Substance: BUPRENORPHINE HYDROCHLORIDE\NALOXONE HYDROCHLORIDE
     Indication: DRUG DEPENDENCE
     Dosage: 10MG DAILY (ONE 8MG FILM PLUS ONE 2MG FILM)
     Route: 060
     Dates: start: 20191224
  8. SUBOXONE [Suspect]
     Active Substance: BUPRENORPHINE HYDROCHLORIDE\NALOXONE HYDROCHLORIDE
     Dosage: 10MG DAILY (ONE 8MG FILM PLUS ONE 2MG FILM)
     Route: 060
     Dates: start: 20200405, end: 20200406

REACTIONS (8)
  - Feeling cold [Recovered/Resolved]
  - Hyperhidrosis [Recovered/Resolved]
  - Diarrhoea [Recovered/Resolved]
  - Drug withdrawal syndrome [Recovered/Resolved]
  - Vomiting [Recovered/Resolved]
  - Drug ineffective [Unknown]
  - Psychomotor hyperactivity [Recovered/Resolved]
  - Wrong technique in product usage process [Not Recovered/Not Resolved]

NARRATIVE: CASE EVENT DATE: 20200406
